FAERS Safety Report 8120199-3 (Version None)
Quarter: 2012Q1

REPORT INFORMATION
  Report Type: 
  Country: None (occurrence: None)
  Receive Date: 20120207
  Receipt Date: 20120125
  Transmission Date: 20120608
  Serious: Yes (Other)
  Sender: FDA-Public Use
  Company Number: ES-MYLANLABS-2012S1001968

PATIENT
  Age: 77 Year
  Sex: Male

DRUGS (3)
  1. AMPICILLIN [Concomitant]
     Indication: ENDOCARDITIS
     Route: 065
  2. VANCOMYCIN [Suspect]
     Indication: ENDOCARDITIS
     Route: 065
  3. GENTAMICIN [Concomitant]
     Indication: ENDOCARDITIS
     Route: 065

REACTIONS (1)
  - LINEAR IGA DISEASE [None]
